FAERS Safety Report 6075872-8 (Version None)
Quarter: 2009Q1

REPORT INFORMATION
  Report Type: 
  Country: None (occurrence: None)
  Receive Date: 20090121
  Receipt Date: 20080428
  Transmission Date: 20090719
  Serious: Yes (Other)
  Sender: FDA-Public Use
  Company Number: US-WYE-H03877008

PATIENT
  Age: 61 Year

DRUGS (4)
  1. PREMPRO [Suspect]
  2. PREMARIN [Suspect]
  3. PROMETRIUM [Suspect]
  4. PROVERA [Suspect]

REACTIONS (4)
  - ANXIETY [None]
  - MYOCARDIAL INFARCTION [None]
  - PAIN [None]
  - STRESS [None]
